FAERS Safety Report 12933329 (Version 4)
Quarter: 2016Q4

REPORT INFORMATION
  Report Type: Spontaneous
  Country: US (occurrence: US)
  Receive Date: 20161111
  Receipt Date: 20161205
  Transmission Date: 20170207
  Serious: Yes (Life-Threatening, Disabling, Other)
  Sender: FDA-Public Use
  Company Number: US-009507513-1611USA005499

PATIENT
  Sex: Female
  Weight: 40.36 kg

DRUGS (2)
  1. HORMONAL CONTRACEPTIVES (UNSPECIFIED) [Suspect]
     Active Substance: UNSPECIFIED INGREDIENT
     Dosage: UNK
     Route: 048
     Dates: start: 201608, end: 2016
  2. NEXPLANON [Suspect]
     Active Substance: ETONOGESTREL
     Indication: CONTRACEPTION
     Dosage: 1 DF, UNK
     Dates: start: 201507

REACTIONS (14)
  - Mood altered [Not Recovered/Not Resolved]
  - Device deployment issue [Not Recovered/Not Resolved]
  - Contusion [Not Recovered/Not Resolved]
  - Complication associated with device [Recovered/Resolved]
  - Suicide attempt [Unknown]
  - Cellulitis [Recovered/Resolved]
  - Anaemia [Not Recovered/Not Resolved]
  - Localised infection [Recovered/Resolved]
  - Device difficult to use [Not Recovered/Not Resolved]
  - Device dislocation [Not Recovered/Not Resolved]
  - Depression [Not Recovered/Not Resolved]
  - Suicidal ideation [Not Recovered/Not Resolved]
  - Menorrhagia [Not Recovered/Not Resolved]
  - Device difficult to use [Not Recovered/Not Resolved]

NARRATIVE: CASE EVENT DATE: 201506
